FAERS Safety Report 16024815 (Version 1)
Quarter: 2019Q1

REPORT INFORMATION
  Report Type: Spontaneous
  Country: US (occurrence: US)
  Receive Date: 20190301
  Receipt Date: 20190301
  Transmission Date: 20190418
  Serious: Yes (Other)
  Sender: FDA-Public Use
  Company Number: US-DSJP-DSU-2019-106622

PATIENT

DRUGS (3)
  1. MORPHABOND ER [Suspect]
     Active Substance: MORPHINE SULFATE
     Indication: COMPLEX REGIONAL PAIN SYNDROME
     Dosage: 15 MG, QD (QHS)
     Route: 048
     Dates: start: 201812
  2. MORPHABOND ER [Suspect]
     Active Substance: MORPHINE SULFATE
     Indication: BACK PAIN
     Dosage: 15 MG, BID
     Route: 048
     Dates: start: 201809, end: 201812
  3. PERCOCET [Concomitant]
     Active Substance: ACETAMINOPHEN\OXYCODONE HYDROCHLORIDE
     Indication: PAIN
     Dosage: UNK
     Route: 048

REACTIONS (6)
  - Product residue present [Unknown]
  - Dehydration [Recovered/Resolved]
  - Drug withdrawal syndrome [Unknown]
  - Colitis [Recovered/Resolved]
  - Mydriasis [Unknown]
  - Off label use [Not Recovered/Not Resolved]

NARRATIVE: CASE EVENT DATE: 201812
